FAERS Safety Report 7520024-5 (Version None)
Quarter: 2011Q2

REPORT INFORMATION
  Report Type: 
  Country: None (occurrence: None)
  Receive Date: 20110602
  Receipt Date: 20110520
  Transmission Date: 20111010
  Serious: Yes (Hospitalization, Disabling)
  Sender: FDA-Public Use
  Company Number: PHHY2010GR62320

PATIENT
  Age: 53 Year
  Sex: Female

DRUGS (7)
  1. EXJADE [Suspect]
     Indication: THALASSAEMIA
     Dosage: 1500 MG, UNK
     Route: 048
     Dates: start: 20091120, end: 20100909
  2. VOLIBRIS [Suspect]
     Indication: PULMONARY HYPERTENSION
     Dosage: UNK
     Dates: start: 20100521, end: 20100909
  3. ONE-ALPHA [Concomitant]
     Dosage: UNK
     Dates: end: 20100909
  4. SINTROM [Concomitant]
     Dosage: UNK
     Dates: end: 20100909
  5. FILICINE [Concomitant]
     Dosage: UNK
     Dates: end: 20100909
  6. LASIX [Concomitant]
     Dosage: UNK
     Dates: end: 20100909
  7. MEGA-CALCIUM [Concomitant]
     Dosage: UNK
     Dates: end: 20100909

REACTIONS (5)
  - AKINESIA [None]
  - HYPOAESTHESIA [None]
  - PULMONARY HYPERTENSION [None]
  - GUILLAIN-BARRE SYNDROME [None]
  - HAEMOLYTIC ANAEMIA [None]
